FAERS Safety Report 4636233-9 (Version None)
Quarter: 2005Q2

REPORT INFORMATION
  Report Type: 
  Country: None (occurrence: None)
  Receive Date: 20050413
  Receipt Date: 20050413
  Transmission Date: 20051028
  Serious: No
  Sender: FDA-Public Use
  Company Number: None

PATIENT
  Age: 44 Year
  Sex: Female

DRUGS (2)
  1. OPTIRAY 320 [Suspect]
     Indication: HAEMATURIA
     Dosage: 100 ML IV
     Route: 042
     Dates: start: 20050324
  2. OPTIRAY 320 [Suspect]
     Indication: UROGRAPHY
     Dosage: 100 ML IV
     Route: 042
     Dates: start: 20050324

REACTIONS (12)
  - ABDOMINAL PAIN UPPER [None]
  - CHEST PAIN [None]
  - DYSPNOEA [None]
  - ERYTHEMA [None]
  - MALAISE [None]
  - NAUSEA [None]
  - OXYGEN SATURATION DECREASED [None]
  - POST PROCEDURAL COMPLICATION [None]
  - RALES [None]
  - RETCHING [None]
  - THROAT IRRITATION [None]
  - WHEEZING [None]
